FAERS Safety Report 15610638 (Version 1)
Quarter: 2018Q4

REPORT INFORMATION
  Report Type: Spontaneous
  Country: US (occurrence: US)
  Receive Date: 20181113
  Receipt Date: 20181113
  Transmission Date: 20190205
  Serious: Yes (Other)
  Sender: FDA-Public Use
  Company Number: US-ROCHE-2017658

PATIENT
  Age: 62 Year
  Sex: Female

DRUGS (26)
  1. PAXIL [Concomitant]
     Active Substance: PAROXETINE HYDROCHLORIDE
     Route: 065
  2. ALBUTEROL SULFATE. [Concomitant]
     Active Substance: ALBUTEROL SULFATE
     Dosage: 90 MCG
     Route: 065
  3. AMLODIPINE [Concomitant]
     Active Substance: AMLODIPINE BESYLATE
     Route: 065
  4. METFORMIN [Concomitant]
     Active Substance: METFORMIN HYDROCHLORIDE
     Route: 065
  5. PANTOPRAZOLE [Concomitant]
     Active Substance: PANTOPRAZOLE
     Route: 065
  6. NEURONTIN [Suspect]
     Active Substance: GABAPENTIN
     Indication: PRODUCT USED FOR UNKNOWN INDICATION
     Route: 065
  7. LISINOPRIL. [Concomitant]
     Active Substance: LISINOPRIL
     Route: 065
  8. IBRANCE [Suspect]
     Active Substance: PALBOCICLIB
     Indication: PRODUCT USED FOR UNKNOWN INDICATION
     Dosage: 28 DAY SUPPLY
     Route: 065
     Dates: start: 201509
  9. FASLODEX [Concomitant]
     Active Substance: FULVESTRANT
     Route: 065
     Dates: start: 201612
  10. OXYCODONE [Concomitant]
     Active Substance: OXYCODONE
     Route: 065
  11. PERCOCET [Concomitant]
     Active Substance: ACETAMINOPHEN\OXYCODONE HYDROCHLORIDE
  12. VITAMIN C [Concomitant]
     Active Substance: ASCORBIC ACID
     Route: 065
  13. ADRIAMYCIN [Concomitant]
     Active Substance: DOXORUBICIN HYDROCHLORIDE
  14. TRAZODONE [Concomitant]
     Active Substance: TRAZODONE HYDROCHLORIDE
     Route: 065
  15. HERCEPTIN [Suspect]
     Active Substance: TRASTUZUMAB
     Indication: LYMPHOEDEMA
  16. TAMOXIFEN [Concomitant]
     Active Substance: TAMOXIFEN
  17. LETROZOLE. [Concomitant]
     Active Substance: LETROZOLE
     Route: 065
  18. VITAMIN D3 [Concomitant]
     Active Substance: CHOLECALCIFEROL
     Route: 065
  19. CYTOXAN [Concomitant]
     Active Substance: CYCLOPHOSPHAMIDE
  20. HERCEPTIN [Suspect]
     Active Substance: TRASTUZUMAB
     Indication: BREAST CANCER FEMALE
     Route: 065
     Dates: start: 201512
  21. HERCEPTIN [Suspect]
     Active Substance: TRASTUZUMAB
     Indication: MYALGIA
  22. LETROZOLE. [Concomitant]
     Active Substance: LETROZOLE
     Route: 065
  23. DILAUDID [Concomitant]
     Active Substance: HYDROMORPHONE HYDROCHLORIDE
     Route: 065
  24. LAMOTRIGINE. [Concomitant]
     Active Substance: LAMOTRIGINE
     Route: 065
  25. BUPROPION. [Concomitant]
     Active Substance: BUPROPION
     Route: 065
  26. NYSTATIN. [Concomitant]
     Active Substance: NYSTATIN
     Dosage: 100000 UNIT/ML
     Route: 065

REACTIONS (26)
  - Gastrooesophageal reflux disease [Unknown]
  - Duodenitis [Unknown]
  - Headache [Unknown]
  - Tenderness [Unknown]
  - Pain [Unknown]
  - Insomnia [Unknown]
  - Restlessness [Unknown]
  - Cough [Unknown]
  - Arthralgia [Unknown]
  - Myalgia [Unknown]
  - Depression [Unknown]
  - Dyspnoea [Unknown]
  - Nervousness [Unknown]
  - Renal failure [Unknown]
  - Anaemia of malignant disease [Unknown]
  - Fatigue [Unknown]
  - Ill-defined disorder [Unknown]
  - Anxiety [Unknown]
  - Mental impairment [Unknown]
  - Contusion [Unknown]
  - Skin hyperpigmentation [Unknown]
  - Hot flush [Unknown]
  - Dysphagia [Unknown]
  - Gastritis [Unknown]
  - Synovitis [Unknown]
  - Axillary pain [Unknown]

NARRATIVE: CASE EVENT DATE: 20171010
